FAERS Safety Report 24274369 (Version 1)
Quarter: 2024Q3

REPORT INFORMATION
  Report Type: Spontaneous
  Country: DE (occurrence: DE)
  Receive Date: 20240902
  Receipt Date: 20240902
  Transmission Date: 20241016
  Serious: Yes (Hospitalization, Other)
  Sender: DR REDDYS
  Company Number: None

PATIENT
  Age: 71 Year
  Sex: Male
  Weight: 74 kg

DRUGS (12)
  1. TAMSULOSIN [Suspect]
     Active Substance: TAMSULOSIN
     Indication: Product used for unknown indication
     Dosage: 0.4 MG, 1-0-0-0, CAPSULES
     Route: 048
  2. RAMIPRIL [Suspect]
     Active Substance: RAMIPRIL
     Indication: Product used for unknown indication
     Dosage: 5 MG, 1-0-0-0, TABLETS
     Route: 048
  3. PREGABALIN [Suspect]
     Active Substance: PREGABALIN
     Indication: Product used for unknown indication
     Dosage: 50 MG, 2-0-2-0, CAPSULES
     Route: 048
  4. OXYCODONE [Suspect]
     Active Substance: OXYCODONE
     Indication: Product used for unknown indication
     Dosage: 10 MG, AS NEEDED, CAPSULES
     Route: 048
  5. OXYCODONE [Suspect]
     Active Substance: OXYCODONE
     Dosage: 20 MG, 1-0-1-0, EXTENDED-RELEASE TABLETS
     Route: 048
  6. DOCETAXEL [Suspect]
     Active Substance: DOCETAXEL\DOCETAXEL ANHYDROUS
     Indication: Product used for unknown indication
     Dosage: NK NK, NK
  7. OXYCODONE [Suspect]
     Active Substance: OXYCODONE
     Indication: Product used for unknown indication
     Dosage: 20 MG, 1-0-1-0, EXTENDED-RELEASE TABLETS
     Route: 048
  8. ETORICOXIB [Concomitant]
     Active Substance: ETORICOXIB
     Indication: Product used for unknown indication
     Dosage: 90 MG, 0-1-0-0, TABLETS
     Route: 048
  9. PREDNISOLONE [Concomitant]
     Active Substance: PREDNISOLONE
     Indication: Product used for unknown indication
     Dosage: 5 MG, 1-0-1-0 DURING CHEMOTHERAPY, TABLETS
     Route: 048
  10. FERROUS SULFATE [Concomitant]
     Active Substance: FERROUS SULFATE
     Indication: Product used for unknown indication
     Dosage: 50 MG, 2-0-0-0, CAPSULES
     Route: 048
  11. PANTOPRAZOLE [Concomitant]
     Active Substance: PANTOPRAZOLE
     Indication: Product used for unknown indication
     Dosage: 20 MG, 1-0-0-0, TABLETS
     Route: 048
  12. MIRTAZAPINE [Concomitant]
     Active Substance: MIRTAZAPINE
     Indication: Product used for unknown indication
     Dosage: 15 MG, 0-0-1-0, TABLETS
     Route: 048

REACTIONS (2)
  - General physical health deterioration [Recovering/Resolving]
  - Syncope [Recovering/Resolving]

NARRATIVE: CASE EVENT DATE: 20191225
